FAERS Safety Report 8089596-9 (Version None)
Quarter: 2012Q1

REPORT INFORMATION
  Report Type: 
  Country: None (occurrence: None)
  Receive Date: 20120128
  Receipt Date: 20110718
  Transmission Date: 20120608
  Serious: No
  Sender: FDA-Public Use
  Company Number: US-ABBOTT-11P-163-0727356-00

PATIENT
  Sex: Male
  Weight: 127.12 kg

DRUGS (9)
  1. BUSPAR [Concomitant]
     Indication: DEPRESSION
     Dosage: 150 MG DAILY
     Dates: start: 20100101
  2. HUMIRA [Suspect]
     Indication: PSORIASIS
     Dates: start: 20110101, end: 20110701
  3. LASIX [Concomitant]
     Indication: PRODUCT USED FOR UNKNOWN INDICATION
     Dosage: 20 MG
  4. AFRIN [Concomitant]
     Indication: PRODUCT USED FOR UNKNOWN INDICATION
     Dosage: 2 SPRAYS EACH NOSTRIL PRN
  5. UNKNOWN ANTIBIOTICS [Concomitant]
     Dates: end: 20110520
  6. ALLEGRA [Concomitant]
     Indication: PRODUCT USED FOR UNKNOWN INDICATION
  7. ATENOLOL [Concomitant]
     Indication: PRODUCT USED FOR UNKNOWN INDICATION
     Dosage: 5 MG DAILY
  8. HUMIRA [Suspect]
     Dates: start: 20110701
  9. SYNTHROID [Concomitant]
     Indication: PRODUCT USED FOR UNKNOWN INDICATION
     Dosage: 5 MCG DAILY
     Dates: start: 20060101

REACTIONS (4)
  - HEADACHE [None]
  - SINUSITIS [None]
  - NASAL CONGESTION [None]
  - NAUSEA [None]
